FAERS Safety Report 8218198-6 (Version None)
Quarter: 2012Q1

REPORT INFORMATION
  Report Type: 
  Country: None (occurrence: None)
  Receive Date: 20120319
  Receipt Date: 20120313
  Transmission Date: 20120608
  Serious: Yes (Hospitalization, Disabling, Other)
  Sender: FDA-Public Use
  Company Number: CA-SANOFI-AVENTIS-2012SA016835

PATIENT
  Age: 81 Year
  Sex: Female

DRUGS (14)
  1. CLIKSTAR [Suspect]
     Route: 058
  2. ATENOLOL AND CHLORTHALIDONE [Concomitant]
     Dosage: DOSE OF 28 (NOS)
  3. VITAMIN TAB [Concomitant]
  4. ATORVASTATIN [Concomitant]
  5. LANTUS [Suspect]
     Dosage: 42IU IN THE AM AND 36 UNITS IN THE PM
     Route: 058
  6. FOSINOPRIL SODIUM [Concomitant]
     Dosage: DOSAGE OF 10(NOS)
  7. AUTOPEN 24 [Suspect]
  8. SENNA [Concomitant]
  9. ASPIRIN [Concomitant]
     Dosage: DOSAGE 60 (NOS)
  10. TYLENOL [Concomitant]
  11. IRON [Concomitant]
  12. FUROSEMIDE [Concomitant]
  13. MIRTAZAPINE [Concomitant]
  14. LANTUS [Suspect]
     Dosage: 42IU IN THE AM AND 36 UNITS IN THE PM
     Route: 058

REACTIONS (3)
  - HYPERGLYCAEMIA [None]
  - VOMITING [None]
  - CEREBROVASCULAR ACCIDENT [None]
